FAERS Safety Report 5612157-5 (Version None)
Quarter: 2008Q1

REPORT INFORMATION
  Report Type: 
  Country: None (occurrence: None)
  Receive Date: 20080131
  Receipt Date: 20080131
  Transmission Date: 20080703
  Serious: Yes (Other)
  Sender: FDA-Public Use
  Company Number: None

PATIENT
  Age: 21 Year
  Sex: Female

DRUGS (1)
  1. CHANTIX [Suspect]
     Indication: SMOKING CESSATION THERAPY
     Dosage: 1 MG BID PO
     Route: 048
     Dates: start: 20080108, end: 20080126

REACTIONS (17)
  - ABDOMINAL DISCOMFORT [None]
  - ABDOMINAL PAIN [None]
  - ABNORMAL DREAMS [None]
  - AGITATION [None]
  - ALCOHOL USE [None]
  - ANXIETY [None]
  - CONSTIPATION [None]
  - CRYING [None]
  - DELUSION [None]
  - FEAR [None]
  - HOMICIDAL IDEATION [None]
  - IMPULSE-CONTROL DISORDER [None]
  - INSOMNIA [None]
  - MOOD ALTERED [None]
  - NAUSEA [None]
  - SCREAMING [None]
  - SUICIDAL BEHAVIOUR [None]
